FAERS Safety Report 15879441 (Version 1)
Quarter: 2019Q1

REPORT INFORMATION
  Report Type: Spontaneous
  Country: US (occurrence: US)
  Receive Date: 20190104
  Receipt Date: 20190104
  Transmission Date: 20190417
  Serious: Yes (Hospitalization)
  Sender: FDA-Public Use
  Company Number: None

PATIENT
  Age: 32 Year
  Sex: Male

DRUGS (3)
  1. IFOSFAMIDE. [Suspect]
     Active Substance: IFOSFAMIDE
     Dates: end: 20181207
  2. TAXOL [Suspect]
     Active Substance: PACLITAXEL
     Dates: end: 20181207
  3. G-CSF (FILGRASTIM, AMGEN) [Suspect]
     Active Substance: FILGRASTIM
     Dates: end: 20181207

REACTIONS (5)
  - Transplant [None]
  - Metastases to central nervous system [None]
  - Neuropathy peripheral [None]
  - Guillain-Barre syndrome [None]
  - Muscular weakness [None]

NARRATIVE: CASE EVENT DATE: 20181228
